FAERS Safety Report 7153677-4 (Version None)
Quarter: 2010Q4

REPORT INFORMATION
  Report Type: 
  Country: None (occurrence: None)
  Receive Date: 20101213
  Receipt Date: 20101201
  Transmission Date: 20110411
  Serious: Yes (Hospitalization)
  Sender: FDA-Public Use
  Company Number: FR-SANOFI-AVENTIS-2010SA070710

PATIENT
  Age: 60 Year
  Sex: Male
  Weight: 97 kg

DRUGS (3)
  1. MULTAQ [Suspect]
     Indication: ATRIAL FIBRILLATION
     Route: 048
     Dates: start: 20101104, end: 20101117
  2. TRIATEC [Concomitant]
     Route: 048
  3. METFORMIN HCL [Concomitant]
     Route: 048

REACTIONS (4)
  - ATRIAL FIBRILLATION [None]
  - CARDIAC FAILURE [None]
  - DYSPNOEA [None]
  - TACHYCARDIA [None]
